FAERS Safety Report 14262421 (Version 1)
Quarter: 2017Q4

REPORT INFORMATION
  Report Type: Report from Study
  Country: FR (occurrence: FR)
  Receive Date: 20171208
  Receipt Date: 20171208
  Transmission Date: 20180321
  Serious: Yes (Hospitalization)
  Sender: FDA-Public Use
  Company Number: FR-ACCORD-061749

PATIENT
  Age: 46 Year
  Sex: Female
  Weight: 41 kg

DRUGS (8)
  1. ZOPHREN [Concomitant]
     Active Substance: ONDANSETRON
     Dates: start: 20150305
  2. FOLINIC ACID [Suspect]
     Active Substance: LEUCOVORIN
     Indication: COLORECTAL CANCER METASTATIC
     Dosage: ALSO RECEIVED AT DOSE OF 580 MG FROM 05-MAR-2015 TO 05-MAR-2015
     Route: 041
     Dates: start: 20150402
  3. IRINOTECAN [Suspect]
     Active Substance: IRINOTECAN
     Indication: COLORECTAL CANCER METASTATIC
     Dosage: ALSO RECEIVED AT DOSE OF 265 MG FROM 05-MAR-2015 TO 05-MAR-2015
     Route: 041
     Dates: start: 20150402
  4. SPASFON [Concomitant]
     Active Substance: PHLOROGLUCINOL\1,3,5-TRIMETHOXYBENZENE
     Dates: start: 20150305
  5. KAYEXALATE [Concomitant]
     Active Substance: SODIUM POLYSTYRENE SULFONATE
     Dates: start: 20150422
  6. AFLIBERCEPT [Suspect]
     Active Substance: AFLIBERCEPT
     Indication: COLORECTAL CANCER METASTATIC
     Dosage: ALSO RECEIVED AT DOS OF 175 MG FROM 05-MAR-2015 TO 05-MAR-2015
     Route: 041
     Dates: start: 20150402
  7. GRANULOCYTE COLONY STIMULATING [Concomitant]
     Active Substance: GRANULOCYTE COLONY-STIMULATING FACTOR NOS
     Dates: start: 20150305
  8. FLUOROURACIL. [Suspect]
     Active Substance: FLUOROURACIL
     Indication: COLORECTAL CANCER METASTATIC
     Dosage: ALSO RECEIVED AT ?DOSE: 580 MG (IV BOLUS) FROM 05-MAR-2015 TO 05-MAR-2015
     Route: 041
     Dates: start: 20150402

REACTIONS (3)
  - Sickle cell anaemia [Not Recovered/Not Resolved]
  - Abdominal pain [Recovered/Resolved]
  - Tuberculosis [Recovered/Resolved]

NARRATIVE: CASE EVENT DATE: 20150410
